FAERS Safety Report 7909558-9 (Version None)
Quarter: 2011Q4

REPORT INFORMATION
  Report Type: 
  Country: None (occurrence: None)
  Receive Date: 20111111
  Receipt Date: 20111028
  Transmission Date: 20120403
  Serious: Yes (Hospitalization)
  Sender: FDA-Public Use
  Company Number: PHHO2007DE07733

PATIENT
  Sex: Female
  Weight: 70.5 kg

DRUGS (6)
  1. EPIRUBICIN [Suspect]
  2. CYCLOPHOSPHAMIDE [Suspect]
  3. FLUOROURACIL [Suspect]
  4. RADIATION [Suspect]
  5. ZOLEDRONIC [Suspect]
     Indication: BREAST CANCER
     Dosage: 4 MG, UNK
     Route: 042
     Dates: start: 20070321, end: 20070321
  6. DOCETAXEL [Suspect]

REACTIONS (1)
  - FACIAL PARESIS [None]
